FAERS Safety Report 8539744-9 (Version None)
Quarter: 2012Q3

REPORT INFORMATION
  Report Type: 
  Country: None (occurrence: None)
  Receive Date: 20120726
  Receipt Date: 20120111
  Transmission Date: 20120928
  Serious: No
  Sender: FDA-Public Use
  Company Number: US-ASTRAZENECA-2010SE25200

PATIENT
  Age: 56 Year
  Sex: Male
  Weight: 167.8 kg

DRUGS (8)
  1. SEROQUEL [Suspect]
     Indication: BIPOLAR DISORDER
     Dosage: 50 MG IN MIDDLE OF THE DAY AND 300 MG AT BEDTIME
     Route: 048
     Dates: start: 20090101
  2. XANAX [Concomitant]
     Indication: ANXIETY
  3. CELEXA [Concomitant]
     Indication: BIPOLAR DISORDER
  4. SEROQUEL [Suspect]
     Indication: SCHIZOPHRENIA
     Dosage: 50 MG IN MIDDLE OF THE DAY AND 300 MG AT BEDTIME
     Route: 048
     Dates: start: 20090101
  5. SEROQUEL [Suspect]
     Indication: SUICIDAL IDEATION
     Dosage: 50 MG IN MIDDLE OF THE DAY AND 300 MG AT BEDTIME
     Route: 048
     Dates: start: 20090101
  6. POTASSIUM CHLORIDE [Concomitant]
  7. LORCET-HD [Concomitant]
     Indication: PAIN
  8. LASIX [Concomitant]

REACTIONS (18)
  - INFLUENZA LIKE ILLNESS [None]
  - TREMOR [None]
  - IRRITABILITY [None]
  - WEIGHT INCREASED [None]
  - DIABETES MELLITUS [None]
  - HEADACHE [None]
  - NAUSEA [None]
  - HANGOVER [None]
  - INSOMNIA [None]
  - DRY MOUTH [None]
  - VOMITING [None]
  - PNEUMONIA [None]
  - COUGH [None]
  - INFLUENZA [None]
  - SLEEP APNOEA SYNDROME [None]
  - NASOPHARYNGITIS [None]
  - WRONG TECHNIQUE IN DRUG USAGE PROCESS [None]
  - DRUG DOSE OMISSION [None]
